FAERS Safety Report 13194635 (Version 1)
Quarter: 2017Q1

REPORT INFORMATION
  Report Type: Spontaneous
  Country: US (occurrence: US)
  Receive Date: 20170207
  Receipt Date: 20170207
  Transmission Date: 20170428
  Serious: No
  Sender: FDA-Public Use
  Company Number: US-JAZZ-2016-US-013055

PATIENT

DRUGS (1)
  1. PRIALT [Suspect]
     Active Substance: ZICONOTIDE ACETATE
     Indication: PAIN
     Dosage: 0.143 ?G, QH
     Route: 037
     Dates: start: 2015

REACTIONS (6)
  - Libido decreased [Unknown]
  - Tongue discolouration [Unknown]
  - Anorgasmia [Unknown]
  - Dry mouth [Unknown]
  - Hallucination [Recovered/Resolved]
  - Tongue ulceration [Unknown]
